FAERS Safety Report 7709605-3 (Version None)
Quarter: 2011Q3

REPORT INFORMATION
  Report Type: 
  Country: None (occurrence: None)
  Receive Date: 20110819
  Receipt Date: 20110812
  Transmission Date: 20111222
  Serious: Yes (Other)
  Sender: FDA-Public Use
  Company Number: 1010365

PATIENT
  Age: 79 Year
  Sex: Female
  Weight: 51 kg

DRUGS (4)
  1. BENADRYL [Concomitant]
  2. DEXAMETHASONE [Concomitant]
  3. CARBOPLATIN [Suspect]
     Indication: PRODUCT USED FOR UNKNOWN INDICATION
     Dosage: SEE IMAGE
     Route: 042
  4. ZOFRAN [Concomitant]

REACTIONS (3)
  - OXYGEN SATURATION DECREASED [None]
  - RASH ERYTHEMATOUS [None]
  - FLUSHING [None]
